FAERS Safety Report 24617156 (Version 1)
Quarter: 2024Q4

REPORT INFORMATION
  Report Type: Spontaneous
  Country: BE (occurrence: BE)
  Receive Date: 20241114
  Receipt Date: 20241114
  Transmission Date: 20250114
  Serious: Yes (Hospitalization, Other)
  Sender: GLAXOSMITHKLINE
  Company Number: BE-GLAXOSMITHKLINE INC-BE2024EME139973

PATIENT

DRUGS (2)
  1. NUCALA [Suspect]
     Active Substance: MEPOLIZUMAB
     Indication: Hypereosinophilic syndrome
     Dosage: 300 MG, Q4W
     Dates: start: 2022
  2. NUCALA [Suspect]
     Active Substance: MEPOLIZUMAB
     Dosage: 600 MG, Q4W
     Dates: start: 202401

REACTIONS (4)
  - Hypereosinophilic syndrome [Unknown]
  - Condition aggravated [Unknown]
  - Pancreatic disorder [Unknown]
  - Off label use [Unknown]

NARRATIVE: CASE EVENT DATE: 20231001
